FAERS Safety Report 9269084 (Version 1)
Quarter: 2013Q2

REPORT INFORMATION
  Report Type: Spontaneous
  Country: US (occurrence: None)
  Receive Date: 20130501
  Receipt Date: 20130501
  Transmission Date: 20140414
  Serious: Yes (Death, Hospitalization)
  Sender: FDA-Public Use
  Company Number: TPA2013A03127

PATIENT
  Sex: 0

DRUGS (1)
  1. ULORIC (FEBUXOSTAT) [Suspect]
     Route: 048

REACTIONS (1)
  - Pericardial effusion [None]
